FAERS Safety Report 6676093-8 (Version None)
Quarter: 2010Q2

REPORT INFORMATION
  Report Type: 
  Country: None (occurrence: None)
  Receive Date: 20100412
  Receipt Date: 20100331
  Transmission Date: 20101027
  Serious: Yes (Disabling, Other)
  Sender: FDA-Public Use
  Company Number: GB-PFIZER INC-2010036075

PATIENT
  Age: 64 Year
  Sex: Female

DRUGS (3)
  1. CHAMPIX [Suspect]
     Indication: SMOKING CESSATION THERAPY
     Dosage: 1 MG, 1X/DAY
     Route: 048
     Dates: start: 20100105, end: 20100119
  2. NITROFURANTOIN [Concomitant]
     Indication: URINARY TRACT INFECTION
     Dosage: 100 MG, 4X/DAY
     Route: 048
     Dates: start: 20091123, end: 20091130
  3. SENNA [Concomitant]
     Indication: CONSTIPATION
     Dosage: 7.5 MG, UNK
     Route: 048
     Dates: start: 20091218, end: 20100101

REACTIONS (3)
  - EMOTIONAL DISTRESS [None]
  - HOT FLUSH [None]
  - PANIC ATTACK [None]
